FAERS Safety Report 13961917 (Version 2)
Quarter: 2017Q4

REPORT INFORMATION
  Report Type: Not Available
  Country: US (occurrence: US)
  Receive Date: 20170912
  Receipt Date: 20171220
  Transmission Date: 20180320
  Serious: Yes (Hospitalization)
  Sender: FDA-Public Use
  Company Number: US-NEUROCRINE BIOSCIENCES INC.-2017NBI00814

PATIENT
  Sex: Male

DRUGS (9)
  1. XANAX [Concomitant]
     Active Substance: ALPRAZOLAM
  2. MULTIVITAMIN [Concomitant]
     Active Substance: VITAMINS
  3. INGREZZA [Suspect]
     Active Substance: VALBENAZINE
     Indication: TARDIVE DYSKINESIA
     Route: 048
     Dates: start: 20170819, end: 20170825
  4. GABAPENTIN. [Concomitant]
     Active Substance: GABAPENTIN
  5. INGREZZA [Suspect]
     Active Substance: VALBENAZINE
     Route: 048
     Dates: start: 20170826, end: 20170828
  6. CLONIDINE. [Concomitant]
     Active Substance: CLONIDINE
  7. LATUDA [Concomitant]
     Active Substance: LURASIDONE HYDROCHLORIDE
  8. VISTARIL [Concomitant]
     Active Substance: HYDROXYZINE PAMOATE
  9. SOMA [Concomitant]
     Active Substance: CARISOPRODOL

REACTIONS (4)
  - Speech disorder [Recovered/Resolved]
  - Gait inability [Recovered/Resolved]
  - Feeling abnormal [Recovered/Resolved]
  - Muscular weakness [Recovered/Resolved]

NARRATIVE: CASE EVENT DATE: 2017
